FAERS Safety Report 5444309-1 (Version None)
Quarter: 2007Q3

REPORT INFORMATION
  Report Type: 
  Country: None (occurrence: None)
  Receive Date: 20070904
  Receipt Date: 20070904
  Transmission Date: 20080115
  Serious: Yes (Hospitalization)
  Sender: FDA-Public Use
  Company Number: None

PATIENT
  Age: 25 Year
  Sex: Female

DRUGS (2)
  1. TOBRAMYCIN [Suspect]
     Dosage: 120 TO 320 MG -SEE TEXT- Q12 TO Q24 HOURS IV
     Route: 042
  2. ZOSYN [Suspect]
     Dosage: 4.5 GRAMS Q6 HOURS IV
     Route: 042

REACTIONS (1)
  - BLOOD CREATININE INCREASED [None]
